FAERS Safety Report 8702541 (Version 6)
Quarter: 2012Q4

REPORT INFORMATION
  Report Type: 
  Country: US (occurrence: US)
  Receive Date: 20120803
  Receipt Date: 20121218
  Transmission Date: 20130627
  Serious: No
  Sender: FDA-Public Use
  Company Number: US-PFIZER INC-2012185444

PATIENT
  Age: 59 Year
  Sex: Female
  Weight: 56 kg

DRUGS (3)
  1. PREMARIN [Suspect]
     Indication: SURGICAL MENOPAUSE
     Dosage: 1.25 mg, daily
     Route: 048
     Dates: start: 1983
  2. PREMARIN [Suspect]
     Indication: VAGINAL DRYNESS
     Dosage: alternate day, (1/4 applicator 1 x every other day)
  3. SYNTHROID [Concomitant]
     Indication: HYPOTHYROIDISM
     Dosage: 100 ug, daily

REACTIONS (10)
  - Drug effect decreased [Unknown]
  - Sleep phase rhythm disturbance [Unknown]
  - Muscle spasms [Unknown]
  - Hyperhidrosis [Unknown]
  - Product quality issue [Unknown]
  - Hormone level abnormal [Not Recovered/Not Resolved]
  - Vulvovaginal discomfort [Not Recovered/Not Resolved]
  - Dry skin [Not Recovered/Not Resolved]
  - Disturbance in attention [Not Recovered/Not Resolved]
  - Hirsutism [Unknown]
